FAERS Safety Report 4568303-8 (Version None)
Quarter: 2005Q1

REPORT INFORMATION
  Report Type: 
  Country: None (occurrence: None)
  Receive Date: 20050202
  Receipt Date: 20000816
  Transmission Date: 20050727
  Serious: Yes (Life-Threatening, Hospitalization)
  Sender: FDA-Public Use
  Company Number: TH-GLAXOSMITHKLINE-B0369279A

PATIENT
  Age: 75 Year
  Sex: Female
  Weight: 36 kg

DRUGS (4)
  1. AVANDIA [Suspect]
     Dates: start: 20000602
  2. ISORDIL [Concomitant]
     Indication: CORONARY ARTERY DISEASE
     Dosage: 10MG THREE TIMES PER DAY
  3. COVERSYL [Concomitant]
     Indication: CORONARY ARTERY DISEASE
     Dosage: 2MG PER DAY
  4. ASPIRIN [Concomitant]
     Indication: CORONARY ARTERY DISEASE
     Dosage: 60MG PER DAY

REACTIONS (2)
  - BLOOD GLUCOSE INCREASED [None]
  - DIABETIC HYPERGLYCAEMIC COMA [None]
